FAERS Safety Report 19908905 (Version 2)
Quarter: 2021Q4

REPORT INFORMATION
  Report Type: Report from Study
  Country: CA (occurrence: CA)
  Receive Date: 20211001
  Receipt Date: 20211015
  Transmission Date: 20220303
  Serious: Yes (Other)
  Sender: FDA-Public Use
  Company Number: CA-TAKEDA-2021TUS059223

PATIENT
  Age: 48 Year
  Sex: Male

DRUGS (12)
  1. TEDUGLUTIDE [Suspect]
     Active Substance: TEDUGLUTIDE
     Indication: Short-bowel syndrome
     Dosage: 3.9 MILLIGRAM, QD
     Route: 065
     Dates: start: 20190318
  2. TEDUGLUTIDE [Suspect]
     Active Substance: TEDUGLUTIDE
     Indication: Short-bowel syndrome
     Dosage: 3.9 MILLIGRAM, QD
     Route: 065
     Dates: start: 20190318
  3. TEDUGLUTIDE [Suspect]
     Active Substance: TEDUGLUTIDE
     Indication: Short-bowel syndrome
     Dosage: 3.9 MILLIGRAM, QD
     Route: 065
     Dates: start: 20190318
  4. TEDUGLUTIDE [Suspect]
     Active Substance: TEDUGLUTIDE
     Indication: Short-bowel syndrome
     Dosage: 3.9 MILLIGRAM, QD
     Route: 065
     Dates: start: 20190318
  5. WARFARIN [Concomitant]
     Active Substance: WARFARIN
     Indication: Thrombosis
     Dosage: 8 MILLIGRAM, QD
     Route: 048
     Dates: start: 202106
  6. FRAGMIN [Concomitant]
     Active Substance: DALTEPARIN SODIUM
     Indication: Deep vein thrombosis
     Dosage: 15000 INTERNATIONAL UNIT, QD
     Route: 058
     Dates: start: 20210314, end: 202106
  7. VITAMIN D3 [Concomitant]
     Active Substance: CHOLECALCIFEROL
     Indication: Malabsorption
     Dosage: 1000 INTERNATIONAL UNIT, QD
     Route: 048
     Dates: start: 20200106
  8. VITAMIN D3 [Concomitant]
     Active Substance: CHOLECALCIFEROL
     Indication: Vitamin D deficiency
  9. VITAMIN B12 [Concomitant]
     Active Substance: CYANOCOBALAMIN
     Indication: Malabsorption
     Dosage: 1000 MICROGRAM, MONTHLY
     Route: 030
  10. VITAMIN B12 [Concomitant]
     Active Substance: CYANOCOBALAMIN
     Indication: Vitamin B12 deficiency
  11. Centrum forte [Concomitant]
     Indication: Malabsorption
     Dosage: UNK, QD
     Route: 048
  12. Centrum forte [Concomitant]
     Indication: Hypovitaminosis

REACTIONS (2)
  - Nephrocalcinosis [Not Recovered/Not Resolved]
  - Pancreatic disorder [Not Recovered/Not Resolved]

NARRATIVE: CASE EVENT DATE: 20210121
